FAERS Safety Report 8408007-4 (Version None)
Quarter: 2012Q2

REPORT INFORMATION
  Report Type: 
  Country: None (occurrence: None)
  Receive Date: 20120604
  Receipt Date: 20120522
  Transmission Date: 20120825
  Serious: Yes (Other)
  Sender: FDA-Public Use
  Company Number: JP-MERCK-1205USA04617

PATIENT
  Age: 39 Year
  Sex: Male

DRUGS (4)
  1. BASEN [Concomitant]
     Route: 065
  2. JANUVIA [Suspect]
     Indication: TYPE 2 DIABETES MELLITUS
     Route: 048
     Dates: start: 20120417, end: 20120420
  3. AMARYL [Concomitant]
     Route: 065
  4. ACTOS [Concomitant]
     Route: 065

REACTIONS (1)
  - GLOSSITIS [None]
